FAERS Safety Report 8444110 (Version 14)
Quarter: 2013Q4

REPORT INFORMATION
  Report Type: Report from Study
  Country: GB (occurrence: GB)
  Receive Date: 20120306
  Receipt Date: 20131029
  Transmission Date: 20140711
  Serious: Yes (Hospitalization)
  Sender: FDA-Public Use
  Company Number: PHHO2012GB003325

PATIENT
  Sex: 0

DRUGS (5)
  1. ACZ885 [Suspect]
     Indication: JUVENILE IDIOPATHIC ARTHRITIS
     Dosage: 4 MG, UNK
     Route: 058
     Dates: start: 20110811, end: 20130321
  2. FOLIC ACID [Concomitant]
     Dosage: 4 MG, QD
     Route: 048
     Dates: start: 20090808, end: 20121211
  3. AMIKACIN [Concomitant]
  4. METHOTREXATE [Concomitant]
     Dosage: 10 MG, ONCE A WEEK
     Route: 058
     Dates: start: 20090807, end: 20121205
  5. TAZOCIN [Concomitant]

REACTIONS (2)
  - Histiocytosis haematophagic [Recovered/Resolved with Sequelae]
  - Parvovirus infection [Recovered/Resolved]
